FAERS Safety Report 8569381-1 (Version None)
Quarter: 2012Q3

REPORT INFORMATION
  Report Type: 
  Country: None (occurrence: None)
  Receive Date: 20120803
  Receipt Date: 20120501
  Transmission Date: 20120928
  Serious: No
  Sender: FDA-Public Use
  Company Number: US-ABBOTT-12P-163-0931072-00

PATIENT
  Sex: Male

DRUGS (6)
  1. ALTENONOL [Concomitant]
     Indication: PRODUCT USED FOR UNKNOWN INDICATION
  2. L-CARTINE [Concomitant]
     Indication: PRODUCT USED FOR UNKNOWN INDICATION
  3. CHLORODONE [Concomitant]
     Indication: PRODUCT USED FOR UNKNOWN INDICATION
  4. NIASPAN [Suspect]
     Indication: HIGH DENSITY LIPOPROTEIN DECREASED
     Dosage: 1000MG AT BEDTIME
     Dates: start: 20120401
  5. LOVAZA [Concomitant]
     Indication: PRODUCT USED FOR UNKNOWN INDICATION
  6. ASPIRIN [Concomitant]
     Indication: PRODUCT USED FOR UNKNOWN INDICATION
     Dosage: 81MG 30 MINUTES BEFORE NIASPAN

REACTIONS (1)
  - INJECTION SITE PAIN [None]
